FAERS Safety Report 24541905 (Version 1)
Quarter: 2024Q4

REPORT INFORMATION
  Report Type: Spontaneous
  Country: US (occurrence: US)
  Receive Date: 20241023
  Receipt Date: 20241023
  Transmission Date: 20250115
  Serious: No
  Sender: MERCK
  Company Number: US-009507513-2410USA009933

PATIENT

DRUGS (2)
  1. BELSOMRA [Suspect]
     Active Substance: SUVOREXANT
     Dosage: 5 MILLIGRAM, QD
     Route: 048
     Dates: start: 2022
  2. BELSOMRA [Suspect]
     Active Substance: SUVOREXANT
     Dosage: 15 MILLIGRAM, QD
     Route: 048

REACTIONS (2)
  - Product administered to patient of inappropriate age [Unknown]
  - No adverse event [Unknown]

NARRATIVE: CASE EVENT DATE: 20220101
